FAERS Safety Report 5066135-8 (Version None)
Quarter: 2006Q3

REPORT INFORMATION
  Report Type: 
  Country: None (occurrence: None)
  Receive Date: 20060725
  Receipt Date: 20060711
  Transmission Date: 20061208
  Serious: Yes (Hospitalization)
  Sender: FDA-Public Use
  Company Number: CIP06001511

PATIENT
  Age: 58 Year
  Sex: Female

DRUGS (7)
  1. RISEDRONATE SODIUM [Suspect]
     Indication: OSTEOPOROSIS PROPHYLAXIS
     Dosage: 2.5 MG DAILY, ORAL
     Route: 048
     Dates: start: 20060407, end: 20060527
  2. HORMONES AND RELATED AGENTS [Concomitant]
  3. PREDNISOLONE [Concomitant]
  4. PENTASA [Concomitant]
  5. NEO-MINOPHAGEN C           (GLYCYRRHIZIC ACID, AMMONIUM SALT) [Concomitant]
  6. URSO 250 [Concomitant]
  7. PREDONINE (PREDNISOLONE) SUPPOSITORY [Concomitant]

REACTIONS (11)
  - ALPHA 1 FOETOPROTEIN INCREASED [None]
  - ASCITES [None]
  - BILE DUCT CANCER [None]
  - BLOOD ALBUMIN DECREASED [None]
  - CARBOHYDRATE ANTIGEN 19-9 INCREASED [None]
  - CARCINOEMBRYONIC ANTIGEN INCREASED [None]
  - CHOLANGITIS SCLEROSING [None]
  - HAEMORRHAGE [None]
  - HEPATIC FAILURE [None]
  - JAUNDICE [None]
  - TUMOUR MARKER INCREASED [None]
